FAERS Safety Report 6919726-0 (Version None)
Quarter: 2010Q3

REPORT INFORMATION
  Report Type: 
  Country: None (occurrence: None)
  Receive Date: 20100811
  Receipt Date: 20100701
  Transmission Date: 20110219
  Serious: No
  Sender: FDA-Public Use
  Company Number: US-BRISTOL-MYERS SQUIBB COMPANY-15175383

PATIENT
  Age: 47 Year
  Sex: Female

DRUGS (2)
  1. IXEMPRA KIT [Suspect]
     Route: 042
     Dates: start: 20100625
  2. XELODA [Suspect]
     Dates: start: 20100626

REACTIONS (2)
  - MUSCLE SPASMS [None]
  - VENOUS INJURY [None]
